FAERS Safety Report 15215371 (Version 1)
Quarter: 2018Q3

REPORT INFORMATION
  Report Type: Spontaneous
  Country: US (occurrence: US)
  Receive Date: 20180730
  Receipt Date: 20180730
  Transmission Date: 20181010
  Serious: No
  Sender: FDA-Public Use
  Company Number: US-SUNOVION-2018SUN002900

PATIENT
  Sex: Female
  Weight: 31.75 kg

DRUGS (4)
  1. APTIOM [Suspect]
     Active Substance: ESLICARBAZEPINE ACETATE
     Dosage: 200 MG, ONE AND A HALF TABLETS AT BEDTIME
     Route: 048
  2. DAILY VITAMINS [Concomitant]
     Dosage: UNK
  3. APTIOM [Suspect]
     Active Substance: ESLICARBAZEPINE ACETATE
     Dosage: 200 MG, ONE TABLET AT BEDTIME
     Route: 048
  4. APTIOM [Suspect]
     Active Substance: ESLICARBAZEPINE ACETATE
     Indication: BENIGN ROLANDIC EPILEPSY
     Dosage: 200 MG, TWO TABLETS AT BEDTIME
     Route: 048

REACTIONS (2)
  - Somnolence [Not Recovered/Not Resolved]
  - Off label use [Unknown]
